FAERS Safety Report 7560221-6 (Version None)
Quarter: 2011Q2

REPORT INFORMATION
  Report Type: 
  Country: None (occurrence: None)
  Receive Date: 20110621
  Receipt Date: 20110609
  Transmission Date: 20111010
  Serious: Yes (Other)
  Sender: FDA-Public Use
  Company Number: US-CELGENEUS-163-C5013-11061628

PATIENT
  Sex: Male
  Weight: 73.4 kg

DRUGS (20)
  1. POTASSIUM PHOSPHATES [Concomitant]
     Dosage: 250MG-280MG
     Route: 048
     Dates: start: 20110223
  2. DEXAMETHASONE [Suspect]
     Indication: MULTIPLE MYELOMA
     Dosage: 40 MILLIGRAM
     Route: 065
     Dates: start: 20100428
  3. INSULIN [Concomitant]
     Dosage: 6 UNITS
     Route: 065
  4. PROTONIX [Concomitant]
     Route: 065
  5. CALCIUM CARBONATE [Concomitant]
     Dosage: 1000 MILLIGRAM
     Route: 048
     Dates: start: 20110223
  6. CARVEDILOL [Concomitant]
     Dosage: 12.5 MILLIGRAM
     Route: 048
     Dates: start: 20110216
  7. MULTI-VITAMINS [Concomitant]
     Dosage: 1 TABLET
     Route: 048
     Dates: start: 20110127
  8. NITROGLYCERIN [Concomitant]
     Dosage: .4 MILLIGRAM
     Route: 060
     Dates: start: 20110216
  9. OMEPRAZOLE [Concomitant]
     Dosage: 20 MILLIGRAM
     Route: 048
     Dates: start: 20110223
  10. DEXAMETHASONE [Suspect]
     Dosage: 40 MILLIGRAM
     Route: 065
     Dates: start: 20110202, end: 20110217
  11. PERCOCET [Concomitant]
     Dosage: 5/325, 1-2 TABLETS
     Route: 048
     Dates: start: 20110127
  12. CIPROFLOXACIN [Concomitant]
     Dosage: 500 MILLIGRAM
     Route: 048
     Dates: start: 20110218
  13. SODIUM PHOSPHATE [Concomitant]
     Dosage: 250MG-280MG
     Route: 048
     Dates: start: 20110223
  14. LENALIDOMIDE [Suspect]
     Indication: MULTIPLE MYELOMA
     Dosage: 25 MILLIGRAM
     Route: 048
     Dates: start: 20100428
  15. CYMBALTA [Concomitant]
     Dosage: 30 MILLIGRAM
     Route: 048
     Dates: start: 20110218
  16. SIMVASTATIN [Concomitant]
     Dosage: 40 MILLIGRAM
     Route: 048
     Dates: start: 20110127
  17. VITAMIN D [Concomitant]
     Dosage: 1000 IU (INTERNATIONAL UNIT)
     Route: 048
     Dates: start: 20110218
  18. LENALIDOMIDE [Suspect]
     Dosage: 25 MILLIGRAM
     Route: 048
     Dates: start: 20110202, end: 20110217
  19. ASPIRIN [Concomitant]
     Dosage: 325 MILLIGRAM
     Route: 048
     Dates: start: 20110127
  20. DIGOXIN [Concomitant]
     Dosage: .125 MILLIGRAM
     Route: 048
     Dates: start: 20110127

REACTIONS (1)
  - GASTROSTOMY TUBE INSERTION [None]
